FAERS Safety Report 8358446-5 (Version None)
Quarter: 2012Q2

REPORT INFORMATION
  Report Type: 
  Country: None (occurrence: None)
  Receive Date: 20120514
  Receipt Date: 20110907
  Transmission Date: 20120825
  Serious: No
  Sender: FDA-Public Use
  Company Number: US-TEVA-2011004704

PATIENT
  Sex: Female
  Weight: 56.75 kg

DRUGS (7)
  1. CARVEDILOL [Concomitant]
     Dates: start: 20090101
  2. SERTRALINE HYDROCHLORIDE [Concomitant]
     Dates: start: 20040101
  3. IPRATROPIUM BROMIDE [Concomitant]
  4. PREMPRO [Concomitant]
     Dates: start: 20050101
  5. VITAMIN TAB [Concomitant]
  6. NUVIGIL [Suspect]
     Indication: HYPERSOMNIA
     Dosage: 150 MILLIGRAM;
     Route: 048
     Dates: start: 20110601
  7. NUVIGIL [Suspect]
     Dosage: 75 MILLIGRAM;
     Route: 048
     Dates: end: 20110906

REACTIONS (4)
  - ORAL MUCOSAL BLISTERING [None]
  - PARAESTHESIA [None]
  - INSOMNIA [None]
  - DRUG INEFFECTIVE FOR UNAPPROVED INDICATION [None]
